FAERS Safety Report 20157727 (Version 2)
Quarter: 2025Q4

REPORT INFORMATION
  Report Type: Spontaneous
  Country: AU (occurrence: AU)
  Receive Date: 20211207
  Receipt Date: 20251217
  Transmission Date: 20260118
  Serious: Yes (Death, Life-Threatening, Other)
  Sender: PURDUE
  Company Number: AU-MLMSERVICE-20211005-3148629-1

PATIENT
  Age: 34 Year
  Sex: Male

DRUGS (12)
  1. BUPRENORPHINE [Suspect]
     Active Substance: BUPRENORPHINE
     Indication: Product used for unknown indication
     Dosage: PATCH
     Route: 065
  2. BUPRENORPHINE HYDROCHLORIDE [Suspect]
     Active Substance: BUPRENORPHINE HYDROCHLORIDE
     Indication: Product used for unknown indication
     Dosage: UNK
     Route: 065
  3. DIAZEPAM [Suspect]
     Active Substance: DIAZEPAM
     Indication: Product used for unknown indication
     Dosage: UNK
     Route: 065
  4. ZOLPIDEM [Suspect]
     Active Substance: ZOLPIDEM TARTRATE
     Indication: Product used for unknown indication
     Dosage: MEDICATION ERROR:INJECTING A SOLUTION OF CRUSHED TABLETS
     Route: 042
  5. ZOLPIDEM [Suspect]
     Active Substance: ZOLPIDEM TARTRATE
     Dosage: UNK
     Route: 065
  6. PROMETHAZINE HYDROCHLORIDE [Suspect]
     Active Substance: PROMETHAZINE HYDROCHLORIDE
     Indication: Product used for unknown indication
     Dosage: UNK
     Route: 065
  7. ESOMEPRAZOLE [Concomitant]
     Active Substance: ESOMEPRAZOLE
     Indication: Product used for unknown indication
     Dosage: UNK
     Route: 065
  8. ONDANSETRON [Concomitant]
     Active Substance: ONDANSETRON
     Indication: Product used for unknown indication
     Dosage: UNK
     Route: 065
  9. RIVAROXABAN [Concomitant]
     Active Substance: RIVAROXABAN
     Indication: Product used for unknown indication
     Dosage: UNK
     Route: 065
  10. ACETAMINOPHEN [Concomitant]
     Active Substance: ACETAMINOPHEN
     Indication: Product used for unknown indication
     Dosage: UNK
     Route: 065
  11. SPIRONOLACTONE [Concomitant]
     Active Substance: SPIRONOLACTONE
     Indication: Product used for unknown indication
     Dosage: UNK
     Route: 065
  12. SILDENAFIL [Concomitant]
     Active Substance: SILDENAFIL
     Indication: Product used for unknown indication
     Dosage: UNK
     Route: 065

REACTIONS (13)
  - Unresponsive to stimuli [Fatal]
  - Incorrect route of product administration [Fatal]
  - Depressed level of consciousness [Fatal]
  - Toxicity to various agents [Fatal]
  - Cardiomegaly [Fatal]
  - Drug dependence [Fatal]
  - Hepatic function abnormal [Fatal]
  - Pulmonary artery dilatation [Fatal]
  - Moaning [Fatal]
  - Pulmonary artery thrombosis [Fatal]
  - Pulmonary congestion [Fatal]
  - Pulmonary oedema [Fatal]
  - Right ventricular hypertrophy [Fatal]
